FAERS Safety Report 7882769-7 (Version None)
Quarter: 2011Q4

REPORT INFORMATION
  Report Type: 
  Country: None (occurrence: None)
  Receive Date: 20111101
  Receipt Date: 20110620
  Transmission Date: 20120403
  Serious: No
  Sender: FDA-Public Use
  Company Number: US-AMGEN-USASP2011031371

PATIENT
  Age: 36 Year
  Sex: Female

DRUGS (2)
  1. ENBREL [Suspect]
     Indication: PSORIASIS
     Dosage: 25 MG, Q2WK
     Dates: start: 20050801, end: 20060201
  2. HUMIRA [Concomitant]
     Indication: PSORIASIS

REACTIONS (3)
  - PSORIASIS [None]
  - CONTUSION [None]
  - NASOPHARYNGITIS [None]
